FAERS Safety Report 7442460-8 (Version None)
Quarter: 2011Q2

REPORT INFORMATION
  Report Type: 
  Country: None (occurrence: None)
  Receive Date: 20110428
  Receipt Date: 20110419
  Transmission Date: 20111010
  Serious: Yes (Hospitalization)
  Sender: FDA-Public Use
  Company Number: US-ROCHE-773198

PATIENT
  Sex: Female
  Weight: 101.6 kg

DRUGS (5)
  1. TRASTUZUMAB [Suspect]
     Dosage: CYCLE 4, LAST DOSE PRIOR TO SAE: 04 APRIL 2011
     Route: 042
     Dates: start: 20100819
  2. HYDROCHLOROTHIAZIDE [Concomitant]
     Indication: HYPERTENSION
  3. COZAAR [Concomitant]
     Indication: HYPERTENSION
  4. ELAVIL [Concomitant]
     Indication: ANTIDEPRESSANT THERAPY
  5. NEXIUM [Concomitant]

REACTIONS (2)
  - GASTROINTESTINAL HAEMORRHAGE [None]
  - DUODENAL ULCER [None]
